FAERS Safety Report 13026956 (Version 1)
Quarter: 2016Q4

REPORT INFORMATION
  Report Type: Report from Study
  Country: US (occurrence: US)
  Receive Date: 20161214
  Receipt Date: 20161214
  Transmission Date: 20170207
  Serious: Yes (Hospitalization)
  Sender: FDA-Public Use
  Company Number: US-CORCEPT THERAPEUTICS INC.-US-2016CRT000777

PATIENT

DRUGS (7)
  1. BREO ELLIPTA [Concomitant]
     Active Substance: FLUTICASONE FUROATE\VILANTEROL TRIFENATATE
     Indication: CHRONIC OBSTRUCTIVE PULMONARY DISEASE
     Dosage: 100 MG, UNK
     Route: 065
     Dates: start: 1990
  2. LORAZEPAM. [Concomitant]
     Active Substance: LORAZEPAM
     Indication: ANXIETY
     Dosage: 0.5 MG, UNK
     Route: 065
     Dates: start: 201607
  3. OXYGEN. [Concomitant]
     Active Substance: OXYGEN
     Indication: BRONCHITIS
     Dosage: 2 L, UNK
     Dates: start: 20161016
  4. OXYGEN. [Concomitant]
     Active Substance: OXYGEN
     Indication: PNEUMONIA
  5. INCRUSE ELLIPTA [Concomitant]
     Active Substance: UMECLIDINIUM BROMIDE
     Indication: CHRONIC OBSTRUCTIVE PULMONARY DISEASE
     Dosage: 62.5 MG, UNK
     Route: 065
     Dates: start: 1990
  6. MIFEPRISTONE [Suspect]
     Active Substance: MIFEPRISTONE
     Indication: LUNG ADENOCARCINOMA STAGE IV
     Dosage: 300 MG, QD
     Route: 048
     Dates: start: 20160906
  7. ALBUTEROL                          /00139501/ [Concomitant]
     Active Substance: ALBUTEROL
     Indication: CHRONIC OBSTRUCTIVE PULMONARY DISEASE
     Dosage: UNK, PRN
     Route: 065
     Dates: start: 1990

REACTIONS (9)
  - Acute respiratory failure [Not Recovered/Not Resolved]
  - Acute coronary syndrome [Not Recovered/Not Resolved]
  - Dizziness [Unknown]
  - Acute myocardial infarction [Not Recovered/Not Resolved]
  - Dyspnoea [Unknown]
  - Emphysema [Unknown]
  - Vomiting [Unknown]
  - Pneumonia [Not Recovered/Not Resolved]
  - Drug dose omission [Recovered/Resolved]

NARRATIVE: CASE EVENT DATE: 201611
